FAERS Safety Report 11285718 (Version 7)
Quarter: 2015Q3

REPORT INFORMATION
  Report Type: Spontaneous
  Country: US (occurrence: US)
  Receive Date: 20150721
  Receipt Date: 20150814
  Transmission Date: 20151125
  Serious: Yes (Disabling)
  Sender: FDA-Public Use
  Company Number: US-009507513-1507USA007107

PATIENT
  Age: 62 Year
  Sex: Male

DRUGS (3)
  1. BENADRYL [Interacting]
     Active Substance: DIPHENHYDRAMINE HYDROCHLORIDE
     Indication: DYSPNOEA
  2. BENADRYL [Interacting]
     Active Substance: DIPHENHYDRAMINE HYDROCHLORIDE
     Indication: SINUS DISORDER
     Dosage: 2 DF, QD
     Route: 065
     Dates: start: 20150709, end: 20150710
  3. BELSOMRA [Suspect]
     Active Substance: SUVOREXANT
     Indication: INSOMNIA
     Dosage: 1 TABLET/ONCE PER DAY
     Route: 048
     Dates: start: 20150707, end: 20150710

REACTIONS (33)
  - Insomnia [Unknown]
  - Dyspnoea [Recovering/Resolving]
  - Nightmare [Recovered/Resolved]
  - Asthenia [Unknown]
  - Feeling abnormal [Recovering/Resolving]
  - Chest pain [Unknown]
  - Feeling abnormal [Unknown]
  - Diarrhoea [Unknown]
  - Confusional state [Recovering/Resolving]
  - Tremor [Recovering/Resolving]
  - Sinus disorder [Recovering/Resolving]
  - Anxiety [Recovering/Resolving]
  - Tinnitus [Not Recovered/Not Resolved]
  - Impaired driving ability [Recovering/Resolving]
  - Thinking abnormal [Unknown]
  - Tremor [Recovering/Resolving]
  - Gait disturbance [Not Recovered/Not Resolved]
  - Movement disorder [Recovered/Resolved]
  - Fall [Unknown]
  - Balance disorder [Unknown]
  - Sensory disturbance [Unknown]
  - Insomnia [Not Recovered/Not Resolved]
  - Tremor [Recovering/Resolving]
  - Hallucination, visual [Recovering/Resolving]
  - Hallucination [Recovered/Resolved]
  - Anxiety [Recovered/Resolved]
  - Loss of consciousness [Unknown]
  - Cognitive disorder [Unknown]
  - Amnesia [Unknown]
  - Anxiety [Recovering/Resolving]
  - Hallucination, auditory [Recovering/Resolving]
  - Heart rate increased [Not Recovered/Not Resolved]
  - Drug interaction [Recovering/Resolving]

NARRATIVE: CASE EVENT DATE: 2015
